FAERS Safety Report 20324798 (Version 1)
Quarter: 2022Q1

REPORT INFORMATION
  Report Type: Spontaneous
  Country: US (occurrence: US)
  Receive Date: 20220111
  Receipt Date: 20220111
  Transmission Date: 20220423
  Serious: No
  Sender: FDA-Public Use
  Company Number: US-MYOVANT SCIENCES GMBH-2021MYSCI1000558

PATIENT
  Age: 66 Year
  Sex: Male

DRUGS (3)
  1. ORGOVYX [Suspect]
     Active Substance: RELUGOLIX
     Indication: Prostate cancer
     Dosage: 360 MILLIGRAM, ONE TIME DOSE
     Route: 048
     Dates: start: 20211025, end: 20211025
  2. ORGOVYX [Suspect]
     Active Substance: RELUGOLIX
     Dosage: 120 MILLIGRAM, QD
     Route: 048
     Dates: start: 20211026
  3. Covid-19 booster [Concomitant]
     Indication: COVID-19
     Dosage: UNK
     Dates: start: 20211207

REACTIONS (4)
  - Blood pressure increased [Recovered/Resolved]
  - Hot flush [Not Recovered/Not Resolved]
  - Fungal infection [Unknown]
  - Urine abnormality [Unknown]

NARRATIVE: CASE EVENT DATE: 20211208
